FAERS Safety Report 8409768-0 (Version None)
Quarter: 2012Q2

REPORT INFORMATION
  Report Type: 
  Country: None (occurrence: None)
  Receive Date: 20120605
  Receipt Date: 20120509
  Transmission Date: 20120825
  Serious: Yes (Death)
  Sender: FDA-Public Use
  Company Number: BE-JNJFOC-20120412496

PATIENT
  Age: 15 Year
  Sex: Male
  Weight: 88 kg

DRUGS (2)
  1. REMICADE [Suspect]
     Indication: GRAFT VERSUS HOST DISEASE
     Route: 042
     Dates: start: 20120502
  2. REMICADE [Suspect]
     Dosage: DOSAGE SCHEME: FOR 4 WEEKS.
     Route: 042
     Dates: start: 20120425

REACTIONS (2)
  - GRAFT VERSUS HOST DISEASE [None]
  - OFF LABEL USE [None]
